FAERS Safety Report 5120464-8 (Version None)
Quarter: 2006Q4

REPORT INFORMATION
  Report Type: 
  Country: None (occurrence: None)
  Receive Date: 20061004
  Receipt Date: 20060705
  Transmission Date: 20070319
  Serious: Yes (Death, Hospitalization)
  Sender: FDA-Public Use
  Company Number: PHEH2006US08647

PATIENT
  Age: 46 Year
  Sex: Male

DRUGS (7)
  1. GLEEVEC [Suspect]
     Indication: BRAIN NEOPLASM
     Dosage: 400 MG, BID
     Route: 048
     Dates: start: 20060617, end: 20060626
  2. HYDROXYUREA [Concomitant]
     Indication: BRAIN NEOPLASM
     Dosage: 500 MG, BID
     Route: 048
     Dates: start: 20060617, end: 20060626
  3. PRILOSEC [Concomitant]
     Indication: GASTROOESOPHAGEAL REFLUX DISEASE
     Dosage: 20 MG, BID
     Route: 048
     Dates: start: 20060616, end: 20060805
  4. DEXAMETHASONE TAB [Concomitant]
     Indication: OEDEMA
     Dosage: 14 MG, QD
     Route: 048
     Dates: start: 20060201, end: 20060805
  5. TOPROL-XL [Concomitant]
     Indication: HYPERTENSION
     Dosage: 25 MG, QD
     Route: 048
     Dates: start: 20060613, end: 20060805
  6. TEGRETOL [Concomitant]
     Indication: CONVULSION
     Dosage: 700 MG, QD
     Route: 048
     Dates: start: 20060301, end: 20060805
  7. KEPPRA [Concomitant]
     Indication: CONVULSION
     Dosage: 500 MG, BID
     Route: 048
     Dates: start: 20060401, end: 20060805

REACTIONS (4)
  - COGNITIVE DISORDER [None]
  - HEADACHE [None]
  - HYDROCEPHALUS [None]
  - SUBARACHNOID HAEMORRHAGE [None]
